APPROVED DRUG PRODUCT: COSYNTROPIN
Active Ingredient: COSYNTROPIN
Strength: 0.25MG/ML (0.25MG/ML)
Dosage Form/Route: SOLUTION;INTRAVENOUS
Application: N022028 | Product #001
Applicant: SANDOZ INC
Approved: Feb 21, 2008 | RLD: No | RS: No | Type: DISCN